FAERS Safety Report 12984878 (Version 3)
Quarter: 2020Q3

REPORT INFORMATION
  Report Type: Spontaneous
  Country: US (occurrence: US)
  Receive Date: 20161129
  Receipt Date: 20200910
  Transmission Date: 20201102
  Serious: Yes (Hospitalization, Disabling)
  Sender: FDA-Public Use
  Company Number: US-PURDUE-USA-2016-0133904

PATIENT
  Age: 50 Year
  Sex: Female

DRUGS (4)
  1. HYDROCODONE BITARTRATE AND ACETAMINOPHEN [Suspect]
     Active Substance: ACETAMINOPHEN\HYDROCODONE BITARTRATE
     Indication: PRODUCT USED FOR UNKNOWN INDICATION
     Dosage: 5?325 MG/ML, UNK
     Route: 065
  2. MORPHINE SULFATE (SIMILAR TO NDA 19?516) [Suspect]
     Active Substance: MORPHINE SULFATE
     Indication: PRODUCT USED FOR UNKNOWN INDICATION
     Dosage: 2 MG/ML, UNK
     Route: 065
  3. HYDROCODONE BITARTRATE (SIMILAR TO NDA 206627) [Concomitant]
     Active Substance: HYDROCODONE BITARTRATE
     Indication: INTERVERTEBRAL DISC DEGENERATION
     Dosage: 5 DF, DAILY
     Route: 048
  4. HYSINGLA ER [Suspect]
     Active Substance: HYDROCODONE BITARTRATE
     Indication: INTERVERTEBRAL DISC DEGENERATION
     Dosage: 30 MG, Q24H
     Route: 048
     Dates: start: 20160811, end: 20160811

REACTIONS (19)
  - Dysphonia [Unknown]
  - Choking [Recovered/Resolved]
  - Oropharyngeal pain [Unknown]
  - Dyspnoea [Unknown]
  - Productive cough [Unknown]
  - Dehydration [Unknown]
  - Fatigue [Unknown]
  - Salivary hypersecretion [Recovered/Resolved]
  - Headache [Unknown]
  - Dysphagia [Unknown]
  - Foreign body in throat [Recovered/Resolved]
  - Obstruction [Recovered/Resolved]
  - Cough [Unknown]
  - Vomiting [Unknown]
  - Panic reaction [Unknown]
  - Thirst [Unknown]
  - Abdominal pain upper [Unknown]
  - Throat irritation [Unknown]
  - Anxiety [Unknown]

NARRATIVE: CASE EVENT DATE: 20160811
